FAERS Safety Report 17953535 (Version 2)
Quarter: 2020Q3

REPORT INFORMATION
  Report Type: Other
  Country: CA (occurrence: CA)
  Receive Date: 20200628
  Receipt Date: 20200717
  Transmission Date: 20201103
  Serious: Yes (Hospitalization)
  Sender: FDA-Public Use
  Company Number: CA-LEXICON PHARMACEUTICALS, INC-20-1606-00500

PATIENT
  Age: 71 Year
  Sex: Female

DRUGS (2)
  1. XERMELO [Suspect]
     Active Substance: TELOTRISTAT ETHYL
     Indication: CARCINOID SYNDROME
     Dates: end: 20200610
  2. SOMATULINE [Suspect]
     Active Substance: LANREOTIDE ACETATE
     Indication: CARCINOID SYNDROME
     Route: 058
     Dates: start: 20160630

REACTIONS (5)
  - Constipation [Recovered/Resolved]
  - Off label use [Unknown]
  - Intestinal obstruction [Recovered/Resolved]
  - Off label use [Unknown]
  - Pyelonephritis [Recovering/Resolving]

NARRATIVE: CASE EVENT DATE: 20160630
